FAERS Safety Report 7121154-2 (Version None)
Quarter: 2010Q4

REPORT INFORMATION
  Report Type: 
  Country: None (occurrence: None)
  Receive Date: 20101124
  Receipt Date: 20101110
  Transmission Date: 20110411
  Serious: Yes (Hospitalization, Other)
  Sender: FDA-Public Use
  Company Number: PHHY2010MX76879

PATIENT
  Sex: Female

DRUGS (1)
  1. EXFORGE [Suspect]
     Indication: HYPERTENSION
     Dosage: 160/5 MG PER DAY
     Dates: start: 20091101

REACTIONS (6)
  - ARTHROPATHY [None]
  - INFLAMMATION [None]
  - JOINT EFFUSION [None]
  - KNEE OPERATION [None]
  - OEDEMA PERIPHERAL [None]
  - SPLINT APPLICATION [None]
